FAERS Safety Report 5263686-8 (Version None)
Quarter: 2007Q1

REPORT INFORMATION
  Report Type: 
  Country: None (occurrence: None)
  Receive Date: 20070313
  Receipt Date: 20070226
  Transmission Date: 20070707
  Serious: Yes (Hospitalization)
  Sender: FDA-Public Use
  Company Number: US-AMGEN-STX209954

PATIENT
  Sex: Male

DRUGS (1)
  1. ENBREL [Suspect]
     Indication: PSORIATIC ARTHROPATHY
     Route: 058
     Dates: start: 20040501, end: 20040901

REACTIONS (9)
  - AMYOTROPHIC LATERAL SCLEROSIS [None]
  - APHONIA [None]
  - BLOOD DISORDER [None]
  - COUGH [None]
  - DRY MOUTH [None]
  - DYSPHAGIA [None]
  - LYME DISEASE [None]
  - PHARYNGOLARYNGEAL PAIN [None]
  - SPEECH DISORDER [None]
